FAERS Safety Report 12936582 (Version 1)
Quarter: 2016Q4

REPORT INFORMATION
  Report Type: Spontaneous
  Country: US (occurrence: US)
  Receive Date: 20161114
  Receipt Date: 20161114
  Transmission Date: 20170207
  Serious: No
  Sender: FDA-Public Use
  Company Number: US-INCYTE CORPORATION-2016IN007010

PATIENT
  Sex: Male

DRUGS (2)
  1. ALLOPURINOL. [Concomitant]
     Active Substance: ALLOPURINOL
     Indication: PRODUCT USED FOR UNKNOWN INDICATION
  2. JAKAFI [Suspect]
     Active Substance: RUXOLITINIB
     Dosage: 15 MG (3-5MG) EVERY MORNING AND 10 MG (2-5MG) EVERY EVENING
     Route: 048
     Dates: start: 20160908

REACTIONS (1)
  - Cyst [Recovered/Resolved]

NARRATIVE: CASE EVENT DATE: 2016
